FAERS Safety Report 9271243 (Version 2)
Quarter: 2013Q2

REPORT INFORMATION
  Report Type: Spontaneous
  Country: US (occurrence: US)
  Receive Date: 20130506
  Receipt Date: 20130609
  Transmission Date: 20140414
  Serious: Yes (Hospitalization)
  Sender: FDA-Public Use
  Company Number: US-SANOFI-AVENTIS-2013SA044041

PATIENT
  Age: 74 Year
  Sex: Female
  Weight: 65.77 kg

DRUGS (3)
  1. LANTUS SOLOSTAR [Suspect]
     Indication: DIABETES MELLITUS
     Dosage: THERAPY START DATE - 5 YEARS AGO DOSE:70 UNIT(S)
     Route: 051
  2. SOLOSTAR [Suspect]
     Indication: DIABETES MELLITUS
     Dosage: THERAPY START DATE - 5 YEARS AGO
  3. BUPROPION [Concomitant]
     Indication: DEPRESSION
     Dates: start: 2000

REACTIONS (4)
  - Myocardial infarction [Unknown]
  - Pain in extremity [Unknown]
  - Vomiting [Unknown]
  - Drug dose omission [Unknown]
